FAERS Safety Report 9580369 (Version 1)
Quarter: 2013Q3

REPORT INFORMATION
  Report Type: Spontaneous
  Country: US (occurrence: None)
  Receive Date: 20130916
  Receipt Date: 20130916
  Transmission Date: 20140515
  Serious: Yes (Other)
  Sender: FDA-Public Use
  Company Number: JPI-P-024370

PATIENT
  Age: 48 Year
  Sex: Male
  Weight: 68.04 kg

DRUGS (1)
  1. XYREM (500 MILLIGRAM/MILLILITERS, SOLUTION) (SODIUM OXYBATE) [Suspect]
     Indication: SLEEP DISORDER
     Route: 048
     Dates: start: 20120721, end: 2012

REACTIONS (5)
  - Weight decreased [None]
  - Decreased appetite [None]
  - Paraesthesia [None]
  - Abdominal discomfort [None]
  - Pollakiuria [None]
